FAERS Safety Report 9508282 (Version 6)
Quarter: 2013Q4

REPORT INFORMATION
  Report Type: Spontaneous
  Country: US (occurrence: US)
  Receive Date: 20130909
  Receipt Date: 20131004
  Transmission Date: 20140711
  Serious: No
  Sender: FDA-Public Use
  Company Number: US-PFIZER INC-2013254387

PATIENT
  Age: 38 Year
  Sex: Female

DRUGS (4)
  1. MOTRIN IB [Suspect]
     Indication: PAIN
     Dosage: UNK
     Dates: end: 20130328
  2. ULTRAM [Suspect]
     Indication: PAIN
     Dosage: UNK
     Dates: end: 20130328
  3. TYLENOL WITH CODEINE [Suspect]
     Indication: PAIN
     Dosage: UNK
     Dates: end: 20130328
  4. NUEDEXTA [Suspect]
     Dosage: UNK

REACTIONS (2)
  - Hypotension [Recovered/Resolved]
  - Dizziness [Recovered/Resolved]
